FAERS Safety Report 12282005 (Version 2)
Quarter: 2016Q2

REPORT INFORMATION
  Report Type: Report from Study
  Country: US (occurrence: US)
  Receive Date: 20160419
  Receipt Date: 20160517
  Transmission Date: 20160815
  Serious: Yes (Hospitalization)
  Sender: FDA-Public Use
  Company Number: US-ACTELION-A-US2016-134630

PATIENT
  Age: 60 Year
  Sex: Female

DRUGS (1)
  1. VELETRI [Suspect]
     Active Substance: EPOPROSTENOL
     Indication: PULMONARY HYPERTENSION
     Dosage: 39.5 NG/KG, PER MIN
     Route: 042
     Dates: start: 20150818

REACTIONS (2)
  - Ear infection [Unknown]
  - Viral infection [Unknown]
